FAERS Safety Report 10517608 (Version 1)
Quarter: 2014Q4

REPORT INFORMATION
  Report Type: Spontaneous
  Country: US (occurrence: US)
  Receive Date: 20141014
  Receipt Date: 20141014
  Transmission Date: 20150528
  Serious: No
  Sender: FDA-Public Use
  Company Number: US-GLAXOSMITHKLINE-A1087692A

PATIENT
  Age: 77 Year
  Sex: Male

DRUGS (12)
  1. GABAPENTIN. [Concomitant]
     Active Substance: GABAPENTIN
  2. VENTOLIN [Suspect]
     Active Substance: ALBUTEROL SULFATE
     Dates: start: 2014
  3. AMLODIPINE [Concomitant]
     Active Substance: AMLODIPINE BESYLATE
  4. OMEPRAZOLE. [Concomitant]
     Active Substance: OMEPRAZOLE
  5. CARDURA [Concomitant]
     Active Substance: DOXAZOSIN MESYLATE
  6. ACEBUTOLOL [Concomitant]
     Active Substance: ACEBUTOLOL
  7. TYLENOL [Concomitant]
     Active Substance: ACETAMINOPHEN
  8. FINASTERIDE. [Concomitant]
     Active Substance: FINASTERIDE
  9. LORATADINE. [Concomitant]
     Active Substance: LORATADINE
  10. ANORO ELLIPTA [Suspect]
     Active Substance: UMECLIDINIUM BROMIDE\VILANTEROL TRIFENATATE
     Indication: CHRONIC OBSTRUCTIVE PULMONARY DISEASE
     Route: 055
     Dates: start: 201408
  11. VENTOLIN [Suspect]
     Active Substance: ALBUTEROL SULFATE
     Route: 055
     Dates: start: 2014
  12. ATIVAN [Concomitant]
     Active Substance: LORAZEPAM

REACTIONS (3)
  - Pain [Not Recovered/Not Resolved]
  - Muscle spasms [Recovering/Resolving]
  - Discomfort [Not Recovered/Not Resolved]

NARRATIVE: CASE EVENT DATE: 201408
